FAERS Safety Report 7867150-9 (Version None)
Quarter: 2011Q4

REPORT INFORMATION
  Report Type: 
  Country: None (occurrence: None)
  Receive Date: 20111028
  Receipt Date: 20111024
  Transmission Date: 20120403
  Serious: Yes (Hospitalization)
  Sender: FDA-Public Use
  Company Number: US-JNJFOC-20111011734

PATIENT
  Age: 64 Year
  Sex: Male

DRUGS (7)
  1. NORVASC [Concomitant]
     Route: 065
  2. LISINOPRIL [Concomitant]
     Route: 065
  3. FENTANYL-100 [Concomitant]
     Indication: PAIN
     Route: 065
  4. VELCADE [Suspect]
     Indication: MULTIPLE MYELOMA
     Route: 042
     Dates: start: 20110607
  5. DILAUDID [Concomitant]
     Route: 042
  6. DOXORUBICIN HCL [Suspect]
     Indication: MULTIPLE MYELOMA
     Route: 042
     Dates: start: 20110705
  7. DEXAMETHASONE [Suspect]
     Indication: MULTIPLE MYELOMA
     Route: 048
     Dates: start: 20110607

REACTIONS (2)
  - BONE PAIN [None]
  - PAIN [None]
